FAERS Safety Report 25752022 (Version 2)
Quarter: 2025Q3

REPORT INFORMATION
  Report Type: Spontaneous
  Country: IN (occurrence: IN)
  Receive Date: 20250902
  Receipt Date: 20250908
  Transmission Date: 20251021
  Serious: Yes (Other)
  Sender: PFIZER
  Company Number: IN-MLMSERVICE-20250826-PI623394-00060-2

PATIENT
  Age: 35 Year
  Sex: Male

DRUGS (3)
  1. AZITHROMYCIN [Suspect]
     Active Substance: AZITHROMYCIN
     Indication: Pyrexia
     Dates: start: 202501, end: 202501
  2. AZITHROMYCIN [Suspect]
     Active Substance: AZITHROMYCIN
     Indication: Myalgia
  3. AZITHROMYCIN [Suspect]
     Active Substance: AZITHROMYCIN
     Indication: Headache

REACTIONS (2)
  - Progressive familial intrahepatic cholestasis [Unknown]
  - Condition aggravated [Unknown]

NARRATIVE: CASE EVENT DATE: 20250101
